FAERS Safety Report 8925901 (Version 8)
Quarter: 2013Q2

REPORT INFORMATION
  Report Type: Spontaneous
  Country: GB (occurrence: GB)
  Receive Date: 20121126
  Receipt Date: 20130426
  Transmission Date: 20140414
  Serious: Yes (Death, Other)
  Sender: FDA-Public Use
  Company Number: PHFR2012GB006003

PATIENT
  Age: 50 Year
  Sex: Male
  Weight: 97 kg

DRUGS (2)
  1. CLOZARIL [Suspect]
     Indication: SCHIZOPHRENIA
     Dosage: 300 MG, UNK
     Route: 048
     Dates: start: 2002
  2. CLOZARIL [Suspect]
     Dosage: UNK
     Route: 048
     Dates: start: 20110531

REACTIONS (9)
  - Cardiac arrest [Fatal]
  - Lung neoplasm malignant [Not Recovered/Not Resolved]
  - Lymphadenopathy [Unknown]
  - Metastases to central nervous system [Unknown]
  - Pulmonary oedema [Not Recovered/Not Resolved]
  - Neutropenia [Unknown]
  - Neutrophil count decreased [Recovered/Resolved]
  - White blood cell count decreased [Recovered/Resolved]
  - Vomiting [Unknown]
